FAERS Safety Report 16410490 (Version 2)
Quarter: 2019Q2

REPORT INFORMATION
  Report Type: Spontaneous
  Country: US (occurrence: US)
  Receive Date: 20190610
  Receipt Date: 20190614
  Transmission Date: 20190711
  Serious: No
  Sender: FDA-Public Use
  Company Number: US-PFIZER INC-2019245151

PATIENT
  Age: 60 Year
  Sex: Male
  Weight: 99.79 kg

DRUGS (1)
  1. GABAPENTIN. [Suspect]
     Active Substance: GABAPENTIN
     Indication: PAIN
     Dosage: 2400 MG, DAILY

REACTIONS (2)
  - Overdose [Unknown]
  - Drug ineffective [Unknown]
